FAERS Safety Report 14169835 (Version 1)
Quarter: 2017Q4

REPORT INFORMATION
  Report Type: Spontaneous
  Country: US (occurrence: None)
  Receive Date: 20171107
  Receipt Date: 20171107
  Transmission Date: 20180321
  Serious: Yes (Death)
  Sender: FDA-Public Use
  Company Number: None

PATIENT
  Age: 63 Year
  Sex: Female

DRUGS (10)
  1. APAP/CODEINE [Concomitant]
     Active Substance: ACETAMINOPHEN\CODEINE PHOSPHATE
  2. IPRATROPIUM [Concomitant]
     Active Substance: IPRATROPIUM
  3. OXANDROLONE. [Concomitant]
     Active Substance: OXANDROLONE
  4. FAMOTIDINE. [Concomitant]
     Active Substance: FAMOTIDINE
  5. DEXAMETHASON [Concomitant]
     Active Substance: DEXAMETHASONE
  6. MEGESTROL AC SUS [Concomitant]
  7. ALBUTEROL. [Concomitant]
     Active Substance: ALBUTEROL
  8. BENZONATATE. [Concomitant]
     Active Substance: BENZONATATE
  9. ZYKADIA [Suspect]
     Active Substance: CERITINIB
     Indication: LUNG NEOPLASM MALIGNANT
     Route: 048
     Dates: start: 20171016, end: 20171028
  10. NYSTATIN. [Concomitant]
     Active Substance: NYSTATIN

REACTIONS (1)
  - Death [None]
